FAERS Safety Report 11099784 (Version 2)
Quarter: 2015Q3

REPORT INFORMATION
  Report Type: Report from Study
  Country: US (occurrence: None)
  Receive Date: 20150507
  Receipt Date: 20150818
  Transmission Date: 20151125
  Serious: Yes (Hospitalization, Other)
  Sender: FDA-Public Use
  Company Number: US-2015CRT000397

PATIENT
  Age: 75 Year
  Sex: Female
  Weight: 72.6 kg

DRUGS (29)
  1. VITAMIN C (BIOFLAVONOIDS, CALCIUM ASCORBATE, HESPERIDIN, RUTOSIDE, SODIUM ASCORBATE, ZINE AMINO ACID CHELATE) [Concomitant]
  2. VYTORIN [Concomitant]
     Active Substance: EZETIMIBE\SIMVASTATIN
  3. AMITIZA [Concomitant]
     Active Substance: LUBIPROSTONE
  4. VITAMIN D (ERGOCALCIFEROL) [Concomitant]
     Active Substance: ERGOCALCIFEROL
  5. DIOVAN [Concomitant]
     Active Substance: VALSARTAN
  6. GLIPIZIDE XL [Concomitant]
     Active Substance: GLIPIZIDE
  7. LANTUS [Concomitant]
     Active Substance: INSULIN GLARGINE
  8. PREMARIN [Concomitant]
     Active Substance: ESTROGENS, CONJUGATED
  9. ZOVIRAX [Concomitant]
     Active Substance: ACYCLOVIR
  10. PRAVASTATIN [Concomitant]
     Active Substance: PRAVASTATIN\PRAVASTATIN SODIUM
  11. SPIRONOLACTONE. [Concomitant]
     Active Substance: SPIRONOLACTONE
  12. VITAMIN B 12 (VITAMIN B NOS) [Concomitant]
  13. LOSARTAN. [Concomitant]
     Active Substance: LOSARTAN
  14. PROBIOTICS [Concomitant]
     Active Substance: PROBIOTICS NOS
  15. KORLYM [Suspect]
     Active Substance: MIFEPRISTONE
     Indication: CUSHING^S SYNDROME
     Route: 048
     Dates: start: 20141017, end: 20141030
  16. SURFAK (DOCUSATE CALCIUM) [Concomitant]
  17. FERROUS SULFATE [Concomitant]
     Active Substance: FERROUS SULFATE\FERROUS SULFATE, DRIED
  18. GLIPIZIDE. [Concomitant]
     Active Substance: GLIPIZIDE
  19. RECLAST [Concomitant]
     Active Substance: ZOLEDRONIC ACID
  20. SINGULAIR [Concomitant]
     Active Substance: MONTELUKAST SODIUM
  21. MAGNESIUM CHLORIDE. [Concomitant]
     Active Substance: MAGNESIUM CHLORIDE
  22. VOLTAREN [Concomitant]
     Active Substance: DICLOFENAC SODIUM
  23. MAGNESIUM [Concomitant]
     Active Substance: MAGNESIUM
  24. HUMALOG [Concomitant]
     Active Substance: INSULIN LISPRO
  25. METHIMAZOLE (THIAMAZOLE) [Concomitant]
  26. CALCIUM CARBONATE. [Concomitant]
     Active Substance: CALCIUM CARBONATE
  27. VITAMIN D3 [Concomitant]
     Active Substance: CHOLECALCIFEROL
  28. METFORMIN [Concomitant]
     Active Substance: METFORMIN HYDROCHLORIDE
  29. ECOTRIN [Concomitant]
     Active Substance: ASPIRIN

REACTIONS (16)
  - Condition aggravated [None]
  - Blood glucose increased [None]
  - Dyspnoea [None]
  - Dizziness [None]
  - Fatigue [None]
  - Headache [None]
  - Blood glucose fluctuation [None]
  - Asthenia [None]
  - Blood potassium decreased [None]
  - Hypotension [None]
  - Myalgia [None]
  - Breast calcifications [None]
  - Alopecia [None]
  - Hypertension [None]
  - Nausea [None]
  - Skin disorder [None]

NARRATIVE: CASE EVENT DATE: 2014
